FAERS Safety Report 4872533-5 (Version None)
Quarter: 2005Q4

REPORT INFORMATION
  Report Type: 
  Country: None (occurrence: None)
  Receive Date: 20051230
  Receipt Date: 20051230
  Transmission Date: 20060501
  Serious: Yes (Hospitalization)
  Sender: FDA-Public Use
  Company Number: None

PATIENT
  Age: 81 Year
  Sex: Male
  Weight: 85.5 kg

DRUGS (8)
  1. WARFARIN SODIUM [Suspect]
     Indication: ATRIAL FIBRILLATION
     Dosage: 2.5 MG DAILY EXCEPT 5 MG WED/SAT DAILY PO
     Route: 048
     Dates: start: 20020506, end: 20051024
  2. HYDROCODONE 5/ACETAMINOPHEN [Concomitant]
  3. FUROSEMIDE [Concomitant]
  4. LORAZEPAM [Concomitant]
  5. LISINOPRIL [Concomitant]
  6. PAROXETINE HCL [Concomitant]
  7. GABAPENTIN [Concomitant]
  8. SOTALOL HCL [Concomitant]

REACTIONS (2)
  - EYEBALL RUPTURE [None]
  - FALL [None]
